FAERS Safety Report 9695715 (Version 1)
Quarter: 2013Q4

REPORT INFORMATION
  Report Type: Spontaneous
  Country: US (occurrence: None)
  Receive Date: 20131118
  Receipt Date: 20131118
  Transmission Date: 20140711
  Serious: Yes (Hospitalization)
  Sender: FDA-Public Use
  Company Number: None

PATIENT
  Age: 6 Year
  Sex: Male
  Weight: 20.41 kg

DRUGS (1)
  1. BACTRIM [Suspect]
     Indication: OTITIS MEDIA
     Route: 048
     Dates: start: 20131102, end: 20131109

REACTIONS (4)
  - Rash [None]
  - Swelling face [None]
  - Pyrexia [None]
  - Ocular hyperaemia [None]
